FAERS Safety Report 9815596 (Version 8)
Quarter: 2015Q2

REPORT INFORMATION
  Report Type: Spontaneous
  Country: US (occurrence: US)
  Receive Date: 20140114
  Receipt Date: 20150423
  Transmission Date: 20150821
  Serious: Yes (Hospitalization, Disabling, Other)
  Sender: FDA-Public Use
  Company Number: US-009507513-1401USA001029

PATIENT
  Sex: Female
  Weight: 93.42 kg

DRUGS (4)
  1. FOSAMAX [Suspect]
     Active Substance: ALENDRONATE SODIUM
     Indication: OSTEOPOROSIS
     Dosage: 10 MG, QD
     Route: 048
     Dates: start: 19970720, end: 200011
  2. FOSAMAX [Suspect]
     Active Substance: ALENDRONATE SODIUM
     Dosage: 70 MG, QW
     Route: 048
     Dates: start: 200011, end: 20130514
  3. ALENDRONATE SODIUM. [Suspect]
     Active Substance: ALENDRONATE SODIUM
     Indication: OSTEOPOROSIS
     Dosage: 70 MG, UNK
     Route: 048
     Dates: start: 200802, end: 20130413
  4. CORTICOSTEROIDS (UNSPECIFIED) [Concomitant]
     Active Substance: UNSPECIFIED INGREDIENT
     Indication: ASTHMA
     Dosage: UNK
     Dates: start: 1984

REACTIONS (53)
  - Femur fracture [Unknown]
  - Humerus fracture [Recovered/Resolved]
  - Gout [Unknown]
  - Rheumatoid arthritis [Unknown]
  - Hypercholesterolaemia [Unknown]
  - Staphylococcal infection [Recovered/Resolved]
  - Glaucoma [Unknown]
  - Osteoarthritis [Unknown]
  - Asthma [Unknown]
  - Catheter placement [Unknown]
  - Skin abrasion [Unknown]
  - Humerus fracture [Unknown]
  - Thoracic operation [Unknown]
  - Shoulder arthroplasty [Unknown]
  - Femur fracture [Unknown]
  - Asthma [Not Recovered/Not Resolved]
  - Immunodeficiency [Not Recovered/Not Resolved]
  - Uterine dilation and curettage [Unknown]
  - Hip arthroplasty [Unknown]
  - Pneumonia [Unknown]
  - Cataract operation [Unknown]
  - Hysterectomy [Unknown]
  - Skin ulcer [Unknown]
  - Lung disorder [Unknown]
  - Colon operation [Unknown]
  - Femur fracture [Recovered/Resolved]
  - Intramedullary rod insertion [Recovered/Resolved]
  - Rotator cuff repair [Unknown]
  - Hypergammaglobulinaemia [Unknown]
  - Chronic obstructive pulmonary disease [Unknown]
  - Skin abrasion [Unknown]
  - Sinus tachycardia [Unknown]
  - Insomnia [Unknown]
  - Breast lump removal [Unknown]
  - Tendon sheath incision [Unknown]
  - Cardiac murmur [Unknown]
  - Breast cancer in situ [Unknown]
  - Lymphocytic infiltration [Unknown]
  - Pneumonia [Unknown]
  - Vitamin D deficiency [Unknown]
  - Pleural fibrosis [Not Recovered/Not Resolved]
  - Immunodeficiency common variable [Unknown]
  - Skin disorder [Unknown]
  - Fracture treatment [Unknown]
  - Shoulder arthroplasty [Unknown]
  - Calcium deficiency [Unknown]
  - Intramedullary rod insertion [Unknown]
  - Colitis ulcerative [Unknown]
  - Haematoma [Unknown]
  - Sinus operation [Unknown]
  - Appendicectomy [Unknown]
  - Ocular hyperaemia [Unknown]
  - Adverse event [Unknown]

NARRATIVE: CASE EVENT DATE: 1998
